FAERS Safety Report 16211502 (Version 3)
Quarter: 2019Q3

REPORT INFORMATION
  Report Type: Spontaneous
  Country: FR (occurrence: FR)
  Receive Date: 20190418
  Receipt Date: 20190805
  Transmission Date: 20191004
  Serious: Yes (Hospitalization, Other)
  Sender: FDA-Public Use
  Company Number: FR-ACTELION-A-CH2019-189167

PATIENT
  Age: 34 Year
  Sex: Female
  Weight: 65 kg

DRUGS (13)
  1. ENDOXAN [Suspect]
     Active Substance: CYCLOPHOSPHAMIDE
     Indication: SYSTEMIC LUPUS ERYTHEMATOSUS
     Dosage: 1125 MG, Q1MONTH
     Route: 042
     Dates: start: 20190204
  2. DIFFU K [Concomitant]
     Active Substance: POTASSIUM CHLORIDE
  3. LANSOPRAZOLE. [Suspect]
     Active Substance: LANSOPRAZOLE
     Indication: PROPHYLAXIS AGAINST GASTROINTESTINAL ULCER
     Route: 048
     Dates: start: 20190204
  4. TADALAFIL. [Suspect]
     Active Substance: TADALAFIL
     Dosage: UNK
     Route: 048
     Dates: start: 20190323
  5. BACTRIM [Suspect]
     Active Substance: SULFAMETHOXAZOLE\TRIMETHOPRIM
     Indication: OPPORTUNISTIC INFECTION PROPHYLAXIS
     Route: 048
     Dates: start: 20190206, end: 20190319
  6. AUGMENTIN [Suspect]
     Active Substance: AMOXICILLIN\CLAVULANATE POTASSIUM
     Indication: WISDOM TEETH REMOVAL
     Dosage: 3 G, QD
     Route: 048
     Dates: start: 20190218, end: 20190228
  7. ZYMAD [Concomitant]
     Active Substance: CHOLECALCIFEROL
  8. TADALAFIL. [Suspect]
     Active Substance: TADALAFIL
     Indication: PULMONARY ARTERIAL HYPERTENSION
     Route: 048
     Dates: start: 20190202, end: 20190319
  9. ENDOXAN [Suspect]
     Active Substance: CYCLOPHOSPHAMIDE
     Dosage: 1125 MG, Q1MONTH
     Route: 042
     Dates: start: 20190305
  10. CORTANCYL [Concomitant]
     Active Substance: PREDNISONE
     Indication: SYSTEMIC LUPUS ERYTHEMATOSUS
     Dosage: 60 MG, QD
     Dates: start: 201901
  11. BOSENTAN. [Suspect]
     Active Substance: BOSENTAN
     Indication: PULMONARY ARTERIAL HYPERTENSION
     Route: 048
     Dates: start: 20190129, end: 20190319
  12. BOSENTAN. [Suspect]
     Active Substance: BOSENTAN
     Dosage: UNK
     Route: 048
     Dates: start: 20190322
  13. WELLVONE [Concomitant]
     Active Substance: ATOVAQUONE
     Indication: OPPORTUNISTIC INFECTION PROPHYLAXIS
     Dosage: UNK
     Dates: start: 20190325

REACTIONS (36)
  - Eye discharge [Recovering/Resolving]
  - Genital erosion [Recovering/Resolving]
  - Oesophageal candidiasis [Unknown]
  - Rash maculo-papular [Recovering/Resolving]
  - Nikolsky^s sign [Recovering/Resolving]
  - Oedema peripheral [Recovering/Resolving]
  - Concomitant disease aggravated [Recovering/Resolving]
  - Viral rash [Unknown]
  - Aphthous ulcer [Recovering/Resolving]
  - Scab [Recovering/Resolving]
  - Wisdom teeth removal [Unknown]
  - Rotavirus test positive [Unknown]
  - Enteral nutrition [Unknown]
  - Toxic skin eruption [Recovered/Resolved]
  - Stevens-Johnson syndrome [Recovering/Resolving]
  - Erythema of eyelid [Recovering/Resolving]
  - Lacrimation increased [Recovering/Resolving]
  - Pyrexia [Recovering/Resolving]
  - Oral candidiasis [Unknown]
  - Biopsy skin [Unknown]
  - Cheilitis [Recovering/Resolving]
  - Hypotension [Recovering/Resolving]
  - Tachycardia [Recovering/Resolving]
  - Catarrh [Recovering/Resolving]
  - General physical condition decreased [Recovering/Resolving]
  - Dermatitis psoriasiform [Recovering/Resolving]
  - Rash papular [Recovering/Resolving]
  - Purulent discharge [Recovering/Resolving]
  - Eye disorder [Recovering/Resolving]
  - Face oedema [Recovering/Resolving]
  - Skin plaque [Recovering/Resolving]
  - Conjunctival hyperaemia [Recovering/Resolving]
  - Dysphagia [Recovering/Resolving]
  - Dermatitis bullous [Recovering/Resolving]
  - Odynophagia [Recovering/Resolving]
  - Speech disorder [Recovering/Resolving]

NARRATIVE: CASE EVENT DATE: 20190218
